FAERS Safety Report 15097072 (Version 2)
Quarter: 2018Q3

REPORT INFORMATION
  Report Type: Report from Study
  Country: US (occurrence: US)
  Receive Date: 20180702
  Receipt Date: 20180809
  Transmission Date: 20181010
  Serious: Yes (Death, Hospitalization)
  Sender: FDA-Public Use
  Company Number: US-BAYER-2018-099876

PATIENT
  Age: 72 Year
  Sex: Male

DRUGS (1)
  1. STIVARGA [Suspect]
     Active Substance: REGORAFENIB
     Indication: COLORECTAL CANCER
     Dosage: 80 MG, QD
     Route: 048
     Dates: start: 201804, end: 20180604

REACTIONS (19)
  - Incorrect drug administration duration [None]
  - Herpes zoster [None]
  - Musculoskeletal pain [None]
  - Nausea [None]
  - Death [Fatal]
  - Intestinal obstruction [None]
  - Dysphonia [None]
  - Dyspepsia [None]
  - Haemoglobin decreased [None]
  - Pneumonia [None]
  - Pain in extremity [None]
  - Dyspnoea [None]
  - Ill-defined disorder [None]
  - Poor quality sleep [None]
  - Fatigue [None]
  - Insomnia [None]
  - Fatigue [None]
  - Diarrhoea [None]
  - Off label use [None]

NARRATIVE: CASE EVENT DATE: 2018
